FAERS Safety Report 25567708 (Version 2)
Quarter: 2025Q3

REPORT INFORMATION
  Report Type: Report from Study
  Country: CA (occurrence: CA)
  Receive Date: 20250716
  Receipt Date: 20250730
  Transmission Date: 20251020
  Serious: Yes (Other)
  Sender: ALEXION PHARMACEUTICALS
  Company Number: CA-AstraZeneca-CH-00910032A

PATIENT
  Age: 54 Year
  Sex: Male
  Weight: 48 kg

DRUGS (5)
  1. TEZEPELUMAB [Suspect]
     Active Substance: TEZEPELUMAB
     Indication: Asthma
  2. TEZEPELUMAB [Suspect]
     Active Substance: TEZEPELUMAB
  3. VENTOLIN [Concomitant]
     Active Substance: ALBUTEROL SULFATE
     Route: 065
  4. BREZTRI [Concomitant]
     Active Substance: BUDESONIDE\FORMOTEROL\GLYCOPYRROLATE
     Dosage: 2 DOSAGE FORM, BID
     Route: 065
  5. SYMBICORT [Concomitant]
     Active Substance: BUDESONIDE\FORMOTEROL FUMARATE DIHYDRATE
     Dosage: 200 MICROGRAM, QOD
     Route: 065

REACTIONS (8)
  - Pneumonia [Recovered/Resolved]
  - Arteriosclerosis coronary artery [Unknown]
  - Bronchiectasis [Unknown]
  - Pleural fibrosis [Unknown]
  - Lung opacity [Unknown]
  - Lung hyperinflation [Unknown]
  - Emphysema [Unknown]
  - Diaphragmatic disorder [Unknown]

NARRATIVE: CASE EVENT DATE: 20250107
